FAERS Safety Report 18808941 (Version 11)
Quarter: 2022Q1

REPORT INFORMATION
  Report Type: Report from Study
  Country: TH (occurrence: None)
  Receive Date: 20210129
  Receipt Date: 20220326
  Transmission Date: 20220423
  Serious: Yes (Life-Threatening, Hospitalization)
  Sender: FDA-Public Use
  Company Number: TH-ROCHE-2744472

PATIENT
  Age: 64 Year
  Sex: Male
  Weight: 60.5 kg

DRUGS (20)
  1. ATEZOLIZUMAB [Suspect]
     Active Substance: ATEZOLIZUMAB
     Indication: Hepatocellular carcinoma
     Dosage: ON 14/DEC/2020, HE RECEIVED MOST RECENT DOSE OF ATEZOLIZUMAB (1200 MG) PRIOR TO ADVERSE EVENT ONSET.
     Route: 041
     Dates: start: 20201214
  2. BEVACIZUMAB [Suspect]
     Active Substance: BEVACIZUMAB
     Indication: Hepatocellular carcinoma
     Dosage: ON 14/DEC/2020, HE RECEIVED MOST RECENT DOSE OF BEVACIZUMAB (910 MG) PRIOR TO ADVERSE EVENT ONSET
     Route: 042
     Dates: start: 20201214
  3. TRIAMCINOLONE [Concomitant]
     Active Substance: TRIAMCINOLONE
     Indication: Pruritus
     Route: 062
     Dates: start: 20210105
  4. LASIX [Concomitant]
     Active Substance: FUROSEMIDE
     Indication: Abdominal distension
     Dates: start: 20210118, end: 20210125
  5. LASIX [Concomitant]
     Active Substance: FUROSEMIDE
     Dates: start: 20210130
  6. AIR-X [Concomitant]
     Indication: Abdominal distension
     Dates: start: 20210118, end: 20210125
  7. LACTULOSE [Concomitant]
     Active Substance: LACTULOSE
     Indication: Constipation
     Dates: start: 20210126, end: 20210126
  8. LACTULOSE [Concomitant]
     Active Substance: LACTULOSE
     Indication: Prophylaxis
     Dates: start: 20210129, end: 20210129
  9. LACTULOSE [Concomitant]
     Active Substance: LACTULOSE
     Dates: start: 20210126, end: 20210127
  10. LACTULOSE [Concomitant]
     Active Substance: LACTULOSE
     Dates: start: 20210126, end: 20210202
  11. VALIUM [Concomitant]
     Active Substance: DIAZEPAM
     Dates: start: 20210127, end: 20210127
  12. THIAMINE [Concomitant]
     Active Substance: THIAMINE
     Dates: start: 20210126, end: 20210128
  13. METRONIDAZOLE [Concomitant]
     Active Substance: METRONIDAZOLE
     Indication: Anal abscess
     Dates: start: 20210129, end: 20210205
  14. VITAMIN B COMPLEX [Concomitant]
     Active Substance: CYANOCOBALAMIN\DEXPANTHENOL\NIACINAMIDE\PYRIDOXINE HYDROCHLORIDE\RIBOFLAVIN 5^-PHOSPHATE SODIUM\THIA
     Indication: Prophylaxis
     Dates: start: 20210126
  15. FOLIC ACID [Concomitant]
     Active Substance: FOLIC ACID
     Indication: Prophylaxis
     Dates: start: 20210126
  16. ALDACTONE [Concomitant]
     Active Substance: SPIRONOLACTONE
     Indication: Prophylaxis
     Dates: start: 20210128, end: 20210131
  17. ALDACTONE [Concomitant]
     Active Substance: SPIRONOLACTONE
     Dates: start: 20210131, end: 20210203
  18. ALDACTONE [Concomitant]
     Active Substance: SPIRONOLACTONE
     Dates: start: 20210204
  19. OMEPRAZOLE [Concomitant]
     Active Substance: OMEPRAZOLE
     Indication: Prophylaxis
     Dates: start: 20210126, end: 20210207
  20. OMEPRAZOLE [Concomitant]
     Active Substance: OMEPRAZOLE
     Dates: start: 20210208

REACTIONS (2)
  - Meningitis bacterial [Recovered/Resolved]
  - Hepatitis acute [Not Recovered/Not Resolved]

NARRATIVE: CASE EVENT DATE: 20210104
